FAERS Safety Report 15812045 (Version 1)
Quarter: 2019Q1

REPORT INFORMATION
  Report Type: Spontaneous
  Country: KR (occurrence: KR)
  Receive Date: 20190111
  Receipt Date: 20190111
  Transmission Date: 20190417
  Serious: Yes (Death, Other)
  Sender: FDA-Public Use
  Company Number: KR-009507513-1901KOR002469

PATIENT
  Sex: Male

DRUGS (12)
  1. TRANSAMIN [Concomitant]
     Active Substance: TRANEXAMIC ACID
     Dosage: 1, 28DAYS
     Dates: start: 20180920
  2. HARNAL [Concomitant]
     Active Substance: TAMSULOSIN HYDROCHLORIDE
     Dosage: 1, 28 DAYS
     Dates: start: 20180920
  3. BETMIGA [Concomitant]
     Active Substance: MIRABEGRON
     Dosage: 1, 28 DAYS
     Dates: start: 20180920
  4. MOSAPID [Concomitant]
     Dosage: 1, 28 DAYS
     Dates: start: 20180920
  5. ALBUMIN HUMAN [Concomitant]
     Active Substance: ALBUMIN HUMAN
     Dosage: 1, 1DAY
     Dates: start: 20180920
  6. PENIRAMIN [Concomitant]
     Dosage: 1, 1DAY
     Dates: start: 20180920
  7. SODIUM CHLORIDE. [Concomitant]
     Active Substance: SODIUM CHLORIDE
     Dosage: 1, 1DAY
     Dates: start: 20180920
  8. KEYTRUDA [Suspect]
     Active Substance: PEMBROLIZUMAB
     Indication: GALLBLADDER CANCER
     Dosage: 2, 1 DAY
     Dates: start: 20180920
  9. CURAN [Concomitant]
     Active Substance: RANITIDINE HYDROCHLORIDE
     Dosage: 1, 28DAYS
     Dates: start: 20180920
  10. HEPARIN [Concomitant]
     Active Substance: HEPARIN SODIUM
     Dosage: 1, 1DAY
     Dates: start: 20180920
  11. LACIDOFIL [Concomitant]
     Active Substance: LACTOBACILLUS ACIDOPHILUS\LACTOBACILLUS RHAMNOSUS
     Dosage: 1, 28 DAYS
     Dates: start: 20180920
  12. SYNTHROID [Concomitant]
     Active Substance: LEVOTHYROXINE SODIUM
     Dosage: 1, 28DAYS
     Dates: start: 20180920

REACTIONS (3)
  - Transfusion [Unknown]
  - Product use in unapproved indication [Unknown]
  - Death [Fatal]

NARRATIVE: CASE EVENT DATE: 20180920
